FAERS Safety Report 22592108 (Version 1)
Quarter: 2023Q2

REPORT INFORMATION
  Report Type: Spontaneous
  Country: US (occurrence: US)
  Receive Date: 20230612
  Receipt Date: 20230612
  Transmission Date: 20230721
  Serious: Yes (Other)
  Sender: FDA-Public Use
  Company Number: US-APOTEX-2023AP008961

PATIENT
  Age: 7 Year
  Sex: Male
  Weight: 21.315 kg

DRUGS (4)
  1. ARIPIPRAZOLE [Interacting]
     Active Substance: ARIPIPRAZOLE
     Indication: Aggression
     Dosage: 2 MILLIGRAM, QD
     Route: 065
  2. ARIPIPRAZOLE [Interacting]
     Active Substance: ARIPIPRAZOLE
     Indication: Tic
     Dosage: 1 MILLIGRAM, QD
     Route: 065
  3. DEXTROAMPHETAMINE [Interacting]
     Active Substance: DEXTROAMPHETAMINE
     Indication: Attention deficit hyperactivity disorder
     Dosage: 30 MILLIGRAM, QD
     Route: 065
  4. DEXTROAMPHETAMINE [Interacting]
     Active Substance: DEXTROAMPHETAMINE
     Indication: Learning disorder

REACTIONS (2)
  - Dystonia [Recovered/Resolved]
  - Drug interaction [Recovered/Resolved]
